FAERS Safety Report 6258494-5 (Version None)
Quarter: 2009Q3

REPORT INFORMATION
  Report Type: 
  Country: None (occurrence: None)
  Receive Date: 20090707
  Receipt Date: 20090701
  Transmission Date: 20100115
  Serious: Yes (Life-Threatening, Hospitalization)
  Sender: FDA-Public Use
  Company Number: HK-ABBOTT-09P-075-0583091-00

PATIENT
  Age: 53 Year
  Sex: Male

DRUGS (28)
  1. WARFARIN [Suspect]
     Indication: DRUG USE FOR UNKNOWN INDICATION
     Dosage: NOT REPORTED
  2. METHYL SALICYLATE [Interacting]
     Indication: ANALGESIA
  3. FRAXIPARINE [Concomitant]
     Indication: DRUG USE FOR UNKNOWN INDICATION
     Dosage: NOT REPORTED
  4. ENOXAPARIN SODIUM [Concomitant]
     Indication: DRUG USE FOR UNKNOWN INDICATION
  5. HEPARIN [Concomitant]
     Indication: DRUG USE FOR UNKNOWN INDICATION
     Route: 042
  6. CEFEPIME [Concomitant]
     Indication: PNEUMONIA
     Dosage: NOT REPORTED
  7. CIPROFLAXACIN [Concomitant]
     Indication: PNEUMONIA
     Dosage: NOT REPORTED
  8. PIPERACILLIN SODIUM W/TAZOBACTAM [Concomitant]
     Indication: PNEUMONIA
     Dosage: NOT REPORTED
  9. AMIODARONE HCL [Concomitant]
     Indication: ATRIAL FLUTTER
     Route: 042
  10. AMIODARONE HCL [Concomitant]
     Route: 042
  11. AMIODARONE HCL [Concomitant]
     Route: 042
  12. AMIODARONE HCL [Concomitant]
     Route: 048
  13. AMIODARONE HCL [Concomitant]
     Route: 048
  14. AMIODARONE HCL [Concomitant]
     Route: 048
  15. ALBUTEROL [Concomitant]
     Indication: DRUG USE FOR UNKNOWN INDICATION
     Dosage: NOT REPORTED
  16. IPRATROPIUM BROMIDE [Concomitant]
     Indication: DRUG USE FOR UNKNOWN INDICATION
  17. BUDESONIDE [Concomitant]
     Indication: DRUG USE FOR UNKNOWN INDICATION
  18. HYDROCORTISONE [Concomitant]
     Indication: DRUG USE FOR UNKNOWN INDICATION
     Dosage: NOT REPORTED
  19. PREDNISOLONE [Concomitant]
     Indication: DRUG USE FOR UNKNOWN INDICATION
     Dosage: NOT REPORTED
  20. FRUSEMIDE [Concomitant]
     Indication: DRUG USE FOR UNKNOWN INDICATION
     Dosage: NOT REPORTED
  21. ESOMEPRAZOLE MAGNESIUM [Concomitant]
     Indication: DRUG USE FOR UNKNOWN INDICATION
     Dosage: NOT REPORTED
  22. PEPCIDINE [Concomitant]
     Indication: DRUG USE FOR UNKNOWN INDICATION
     Dosage: NOT REPORTED
  23. HALOPERIDOL [Concomitant]
     Indication: DRUG USE FOR UNKNOWN INDICATION
     Dosage: NOT REPORTED
  24. LACTULOSE [Concomitant]
     Indication: DRUG USE FOR UNKNOWN INDICATION
     Dosage: NOT REPORTED
  25. POTASSIUM CHLORIDE [Concomitant]
     Indication: DRUG USE FOR UNKNOWN INDICATION
     Dosage: NOT REPORTED
  26. DEXTROPROPOXYPHENE [Concomitant]
     Indication: PAIN
  27. ACETAMINOPHEN [Concomitant]
     Indication: PAIN
  28. HEPARIN [Concomitant]
     Indication: DRUG USE FOR UNKNOWN INDICATION
     Dosage: NOT REPORTED

REACTIONS (2)
  - DRUG INTERACTION [None]
  - RETROPERITONEAL HAEMORRHAGE [None]
